FAERS Safety Report 11883637 (Version 2)
Quarter: 2016Q1

REPORT INFORMATION
  Report Type: Spontaneous
  Country: TW (occurrence: TW)
  Receive Date: 20160101
  Receipt Date: 20160108
  Transmission Date: 20160526
  Serious: Yes (Hospitalization, Other)
  Sender: FDA-Public Use
  Company Number: TW-AMGEN-TWNSP2015140050

PATIENT
  Age: 84 Year
  Sex: Male

DRUGS (2)
  1. ENBREL [Suspect]
     Active Substance: ETANERCEPT
     Indication: ANKYLOSING SPONDYLITIS
     Dosage: 25 MG, ONCE PER WEEK
     Route: 058
     Dates: start: 20150330, end: 20151202
  2. SUPLAX [Concomitant]
     Indication: ANKYLOSING SPONDYLITIS
     Dosage: 1 DF, BID
     Route: 048

REACTIONS (8)
  - Gastrooesophageal reflux disease [Unknown]
  - Ascites [Unknown]
  - Decreased appetite [Unknown]
  - Gastric ulcer [Unknown]
  - Gallbladder enlargement [Unknown]
  - Abdominal distension [Unknown]
  - Gallbladder cancer [Not Recovered/Not Resolved]
  - Faeces hard [Unknown]

NARRATIVE: CASE EVENT DATE: 2015
